FAERS Safety Report 4572544-3 (Version None)
Quarter: 2005Q1

REPORT INFORMATION
  Report Type: 
  Country: None (occurrence: None)
  Receive Date: 20050208
  Receipt Date: 20050127
  Transmission Date: 20050727
  Serious: Yes (Hospitalization, Other)
  Sender: FDA-Public Use
  Company Number: GB-JNJFOC-20050106978

PATIENT
  Sex: Male
  Weight: 85 kg

DRUGS (10)
  1. REMICADE [Suspect]
     Indication: RHEUMATOID ARTHRITIS
     Route: 042
  2. PREDNISOLONE [Concomitant]
  3. INDOCIN [Concomitant]
  4. RANITIDINE [Concomitant]
  5. BENDROFLUAZIDE [Concomitant]
  6. VISCOTEARS [Concomitant]
  7. PAROXETINE HCL [Concomitant]
  8. ALENDRONATE SODIUM [Concomitant]
  9. CO-PROXAMOL [Concomitant]
  10. CO-PROXAMOL [Concomitant]

REACTIONS (1)
  - BLADDER CANCER STAGE III [None]
